FAERS Safety Report 21012310 (Version 1)
Quarter: 2022Q2

REPORT INFORMATION
  Report Type: Spontaneous
  Country: US (occurrence: US)
  Receive Date: 20220627
  Receipt Date: 20220627
  Transmission Date: 20220721
  Serious: Yes (Other)
  Sender: FDA-Public Use
  Company Number: US-INCYTE CORPORATION-2022IN006167

PATIENT

DRUGS (2)
  1. JAKAFI [Suspect]
     Active Substance: RUXOLITINIB
     Dosage: 50 MILLIGRAM, QD
     Route: 048
  2. JAKAFI [Suspect]
     Active Substance: RUXOLITINIB
     Dosage: 25 MILLIGRAM, QD
     Route: 048
     Dates: start: 201706

REACTIONS (5)
  - Basal cell carcinoma [Unknown]
  - Malignant melanoma [Unknown]
  - Gout [Unknown]
  - Neuralgia [Unknown]
  - Anaemia [Unknown]

NARRATIVE: CASE EVENT DATE: 20170101
